FAERS Safety Report 8625062-7 (Version None)
Quarter: 2012Q3

REPORT INFORMATION
  Report Type: 
  Country: None (occurrence: None)
  Receive Date: 20120827
  Receipt Date: 20120822
  Transmission Date: 20120928
  Serious: Yes (Hospitalization, Other)
  Sender: FDA-Public Use
  Company Number: FR-PFIZER INC-2012201696

PATIENT
  Age: 64 Year
  Sex: Male

DRUGS (6)
  1. ATORVASTATIN [Suspect]
     Dosage: 40 MG, DAILY
     Route: 048
     Dates: start: 20110501, end: 20120614
  2. NOVORAPID [Concomitant]
     Indication: TYPE 1 DIABETES MELLITUS
     Dosage: 10 IU, 3X/DAY
     Route: 058
     Dates: start: 20120101
  3. IRBESARTAN [Suspect]
     Indication: ACUTE CORONARY SYNDROME
     Dosage: 75 MG, DAILY
     Route: 048
     Dates: start: 20120406, end: 20120614
  4. LASIX [Suspect]
     Dosage: UNK
     Route: 048
     Dates: start: 20110801, end: 20120614
  5. LANTUS [Concomitant]
     Indication: TYPE 1 DIABETES MELLITUS
     Dosage: 22 IU, DAILY
     Route: 058
     Dates: start: 20120101
  6. PROPRANOLOL [Suspect]
     Dosage: 160 MG, 1X/DAY
     Route: 048
     Dates: start: 20110501, end: 20120614

REACTIONS (7)
  - CYTOLYTIC HEPATITIS [None]
  - RHABDOMYOLYSIS [None]
  - HAEMOGLOBIN DECREASED [None]
  - CHOLESTASIS [None]
  - RENAL FAILURE ACUTE [None]
  - HYPOTENSION [None]
  - BRADYCARDIA [None]
